FAERS Safety Report 9881977 (Version 1)
Quarter: 2014Q1

REPORT INFORMATION
  Report Type: Spontaneous
  Country: FR (occurrence: FR)
  Receive Date: 20140207
  Receipt Date: 20140207
  Transmission Date: 20141002
  Serious: Yes (Hospitalization)
  Sender: FDA-Public Use
  Company Number: FR-PFIZER INC-2014032719

PATIENT
  Age: 83 Year
  Sex: Male

DRUGS (15)
  1. AMLOR [Suspect]
     Dosage: 5 MG, 1X/DAY
     Route: 048
     Dates: end: 20131120
  2. LISINOPRIL [Suspect]
     Dosage: 20 MG, 1X/DAY
     Route: 048
     Dates: end: 20131120
  3. LYRICA [Suspect]
     Dosage: 50 MG, 3X/DAY
     Route: 048
  4. LASILIX SPECIAL [Suspect]
     Dosage: 0.25 DF, 1X/DAY
     Route: 048
  5. JOSIR [Suspect]
     Dosage: 0.4 MG, 1X/DAY
     Route: 048
     Dates: end: 20131121
  6. IMODIUM ^JANSSEN-CILAG^ [Suspect]
     Dosage: 2 MG, 1 TO 2 DF A DAY
     Route: 048
     Dates: end: 20131121
  7. IXPRIM [Suspect]
     Dosage: 1 DF, 4X/DAY
     Route: 048
     Dates: end: 20131121
  8. KALEORID [Concomitant]
     Dosage: 600 MG, 3X/DAY
     Route: 048
     Dates: end: 20131120
  9. HAVLANE [Concomitant]
     Dosage: 2 DF, 1X/DAY
     Route: 048
  10. HAVLANE [Concomitant]
     Dosage: 1 DF, 1X/DAY
     Route: 048
     Dates: start: 20131120
  11. SINTROM [Concomitant]
     Dosage: 0.75 DF, 1X/DAY
     Route: 048
  12. LANSOPRAZOLE [Concomitant]
     Dosage: 30 MG, 1X/DAY
     Route: 048
  13. KARDEGIC [Concomitant]
     Dosage: 75 MG, 1X/DAY
     Route: 048
  14. HEMIGOXINE NATIVELLE [Concomitant]
     Dosage: 0.125 MG, 1X/DAY
     Route: 048
  15. IMOVANE [Concomitant]
     Dosage: 3.75 MG, 1X/DAY
     Route: 048

REACTIONS (4)
  - Blood pressure decreased [Recovered/Resolved]
  - Renal failure [Recovered/Resolved]
  - Fall [Recovered/Resolved]
  - Dizziness [Recovered/Resolved]
